FAERS Safety Report 14392904 (Version 1)
Quarter: 2018Q1

REPORT INFORMATION
  Report Type: Spontaneous
  Country: US (occurrence: US)
  Receive Date: 20180112
  Receipt Date: 20180112
  Transmission Date: 20180509
  Serious: Yes (Other)
  Sender: FDA-Public Use
  Company Number: None

PATIENT
  Age: 68 Year
  Sex: Male
  Weight: 85.3 kg

DRUGS (1)
  1. REMICADE [Suspect]
     Active Substance: INFLIXIMAB
     Indication: ANKYLOSING SPONDYLITIS
     Dosage: ?          OTHER FREQUENCY:0, 2, 6 WEEKS;?
     Route: 041
     Dates: start: 20171101, end: 20171220

REACTIONS (2)
  - Blood pressure increased [None]
  - Retching [None]

NARRATIVE: CASE EVENT DATE: 20171220
